FAERS Safety Report 8056531-9 (Version None)
Quarter: 2012Q1

REPORT INFORMATION
  Report Type: 
  Country: None (occurrence: None)
  Receive Date: 20120119
  Receipt Date: 20120109
  Transmission Date: 20120608
  Serious: Yes (Other)
  Sender: FDA-Public Use
  Company Number: US-RB-033146-12

PATIENT
  Age: 62 Year
  Sex: Female

DRUGS (1)
  1. MUCINEX D [Suspect]
     Indication: PRODUCT USED FOR UNKNOWN INDICATION
     Route: 048

REACTIONS (2)
  - DYSPNOEA [None]
  - MUSCLE SPASMS [None]
